FAERS Safety Report 18468972 (Version 1)
Quarter: 2020Q4

REPORT INFORMATION
  Report Type: Spontaneous
  Country: US (occurrence: US)
  Receive Date: 20201105
  Receipt Date: 20201105
  Transmission Date: 20210114
  Serious: Yes (Hospitalization)
  Sender: FDA-Public Use
  Company Number: None

PATIENT
  Age: 89 Year
  Sex: Female
  Weight: 49 kg

DRUGS (2)
  1. VENOFER [Suspect]
     Active Substance: IRON SUCROSE
     Indication: ANAEMIA OF CHRONIC DISEASE
     Dosage: OTHER FREQUENCY:WEEKLY X 3 DOSES;?
     Route: 041
     Dates: start: 20201029
  2. PROCRIT 20000 UNITS [Concomitant]
     Dates: start: 20201029

REACTIONS (1)
  - Clostridium difficile colitis [None]

NARRATIVE: CASE EVENT DATE: 20201102
